FAERS Safety Report 5500038-7 (Version None)
Quarter: 2007Q4

REPORT INFORMATION
  Report Type: 
  Country: None (occurrence: None)
  Receive Date: 20071026
  Receipt Date: 20071015
  Transmission Date: 20080405
  Serious: Yes (Death)
  Sender: FDA-Public Use
  Company Number: KR-GILEAD-E2B_00000006

PATIENT
  Age: 50 Year
  Sex: Male

DRUGS (1)
  1. HEPSERA [Suspect]
     Dosage: 10MG PER DAY
     Route: 048
     Dates: start: 20070305, end: 20070622

REACTIONS (4)
  - ABDOMINAL PAIN UPPER [None]
  - HEPATIC NEOPLASM MALIGNANT [None]
  - LUNG CANCER METASTATIC [None]
  - MELAENA [None]
